FAERS Safety Report 24768964 (Version 2)
Quarter: 2025Q1

REPORT INFORMATION
  Report Type: Report from Study
  Country: US (occurrence: US)
  Receive Date: 20241224
  Receipt Date: 20250207
  Transmission Date: 20250409
  Serious: Yes (Hospitalization)
  Sender: BOEHRINGER INGELHEIM
  Company Number: US-BoehringerIngelheim-2024-BI-069697

PATIENT
  Age: 84 Year
  Sex: Female
  Weight: 62.142 kg

DRUGS (1)
  1. OFEV [Suspect]
     Active Substance: NINTEDANIB
     Indication: Idiopathic pulmonary fibrosis
     Dates: start: 202410, end: 20241227

REACTIONS (2)
  - Diarrhoea [Unknown]
  - Urinary tract infection [Not Recovered/Not Resolved]
